FAERS Safety Report 5345189-5 (Version None)
Quarter: 2007Q2

REPORT INFORMATION
  Report Type: 
  Country: None (occurrence: None)
  Receive Date: 20070420
  Receipt Date: 20060907
  Transmission Date: 20071010
  Serious: Yes (Other)
  Sender: FDA-Public Use
  Company Number: 30028

PATIENT
  Age: 46 Year
  Sex: Female

DRUGS (5)
  1. ALDARA [Suspect]
     Indication: BASAL CELL CARCINOMA
     Dosage: (0.1 SACHET, 3 IN 1 WEEK(S)), TOPICAL
     Route: 061
     Dates: start: 20060825, end: 20060901
  2. DYAZIDE [Concomitant]
  3. SYNTHROID [Concomitant]
  4. PULMICORT [Concomitant]
  5. VIVELLE [Concomitant]

REACTIONS (3)
  - HEADACHE [None]
  - NAUSEA [None]
  - PYREXIA [None]
